FAERS Safety Report 14405424 (Version 1)
Quarter: 2018Q1

REPORT INFORMATION
  Report Type: Spontaneous
  Country: LT (occurrence: LT)
  Receive Date: 20180118
  Receipt Date: 20180118
  Transmission Date: 20180509
  Serious: Yes (Hospitalization)
  Sender: FDA-Public Use
  Company Number: LT-CIPLA LTD.-2018LT01180

PATIENT

DRUGS (7)
  1. RELANIUM [Concomitant]
     Active Substance: DIAZEPAM
     Dosage: UNK
     Route: 065
  2. BURONIL [Concomitant]
     Active Substance: MELPERONE HYDROCHLORIDE
     Dosage: UNK
     Route: 065
  3. CLONAZEPAM. [Concomitant]
     Active Substance: CLONAZEPAM
     Dosage: UNK
     Route: 065
  4. LEVETIRACETAM. [Suspect]
     Active Substance: LEVETIRACETAM
     Dosage: UNK
     Route: 065
  5. CARBALEX [Concomitant]
     Dosage: UNK
     Route: 065
  6. LEVETIRACETAM. [Suspect]
     Active Substance: LEVETIRACETAM
     Indication: EPILEPSY
     Dosage: 1000 MG, UNK
     Route: 048
     Dates: start: 20171215, end: 20171222
  7. KEPPRA [Concomitant]
     Active Substance: LEVETIRACETAM
     Dosage: UNK
     Route: 065

REACTIONS (1)
  - Seizure [Recovered/Resolved]

NARRATIVE: CASE EVENT DATE: 20171216
